FAERS Safety Report 7922953 (Version 2)
Quarter: 2015Q2

REPORT INFORMATION
  Report Type: Spontaneous
  Country: US (occurrence: US)
  Receive Date: 20110429
  Receipt Date: 20150616
  Transmission Date: 20150821
  Serious: Yes (Other)
  Sender: FDA-Public Use
  Company Number: US-ASTRAZENECA-2010SE16731

PATIENT
  Age: 61 Year
  Sex: Female
  Weight: 86.2 kg

DRUGS (9)
  1. PRILOSEC OTC [Suspect]
     Active Substance: OMEPRAZOLE MAGNESIUM
     Indication: GASTROOESOPHAGEAL REFLUX DISEASE
     Dosage: DAILY
     Route: 048
  2. CYANOCOBALAMIN. [Concomitant]
     Active Substance: CYANOCOBALAMIN
     Indication: VITAMIN B12 DECREASED
     Route: 030
  3. TUMS [Concomitant]
     Active Substance: CALCIUM CARBONATE
     Route: 048
  4. CALCIUM [Concomitant]
     Active Substance: CALCIUM
     Indication: BLOOD CALCIUM DECREASED
     Route: 048
  5. NEXIUM [Suspect]
     Active Substance: ESOMEPRAZOLE MAGNESIUM
     Indication: GASTROOESOPHAGEAL REFLUX DISEASE
     Dosage: 40 MG DAILY, HALF AN HOUR BEFORE MEALS
     Route: 048
     Dates: start: 20100115, end: 20140519
  6. VITAMIN D [Concomitant]
     Active Substance: CHOLECALCIFEROL
     Indication: VITAMIN D DECREASED
     Route: 048
  7. EVISTA [Concomitant]
     Active Substance: RALOXIFENE HYDROCHLORIDE
  8. VITAMINS [Concomitant]
     Active Substance: VITAMINS
  9. VITAMIN D [Concomitant]
     Active Substance: CHOLECALCIFEROL
     Indication: VITAMIN D DECREASED
     Dosage: OTC
     Route: 048

REACTIONS (16)
  - Abdominal pain [Unknown]
  - Frequent bowel movements [Unknown]
  - Weight decreased [Recovered/Resolved]
  - Osteopenia [Unknown]
  - Memory impairment [Unknown]
  - Aspiration [Recovered/Resolved]
  - Dyspepsia [Unknown]
  - Arthritis [Unknown]
  - Intentional product misuse [Unknown]
  - Pneumonia [Recovered/Resolved]
  - Diabetes mellitus [Not Recovered/Not Resolved]
  - Vitamin B12 decreased [Unknown]
  - Weight increased [Unknown]
  - Vitamin D decreased [Unknown]
  - Diverticulum [Unknown]
  - Blood magnesium decreased [Unknown]

NARRATIVE: CASE EVENT DATE: 2010
